FAERS Safety Report 4321233-9 (Version None)
Quarter: 2004Q1

REPORT INFORMATION
  Report Type: 
  Country: None (occurrence: None)
  Receive Date: 20040322
  Receipt Date: 20040322
  Transmission Date: 20041129
  Serious: Yes (Life-Threatening, Hospitalization)
  Sender: FDA-Public Use
  Company Number: None

PATIENT
  Age: 69 Year
  Sex: Female

DRUGS (1)
  1. TAXOTERE [Suspect]
     Indication: LUNG NEOPLASM MALIGNANT
     Dosage: 75 MG/M2 X 1 = 140 MG X 1 DOS

REACTIONS (5)
  - BLOOD PH DECREASED [None]
  - CHEST PAIN [None]
  - COMA [None]
  - DYSPNOEA [None]
  - PCO2 INCREASED [None]
